FAERS Safety Report 7473891-8 (Version None)
Quarter: 2011Q2

REPORT INFORMATION
  Report Type: 
  Country: None (occurrence: None)
  Receive Date: 20110511
  Receipt Date: 20110506
  Transmission Date: 20111010
  Serious: Yes (Other)
  Sender: FDA-Public Use
  Company Number: SE-PFIZER INC-2010094648

PATIENT
  Age: 70 Year
  Sex: Female

DRUGS (6)
  1. PREDNISOLONE [Suspect]
     Indication: DIPLOPIA
     Dosage: 40 MG, DAILY
     Dates: start: 20091101
  2. PREDNISOLONE [Suspect]
     Dosage: 30 MG, DAILY
  3. LEVOTHYROXINE SODIUM [Concomitant]
     Indication: THYROID THERAPY
     Dosage: UNK
     Dates: start: 20080101
  4. PREDNISOLONE [Suspect]
     Dosage: 20 MG,DAILY
  5. CITALOPRAM [Concomitant]
     Indication: DEPRESSED MOOD
     Dosage: UNK
  6. PREDNISOLONE [Suspect]
     Dosage: 2.5 MG, UNK
     Dates: end: 20110401

REACTIONS (7)
  - FATIGUE [None]
  - MYALGIA [None]
  - ARTHRALGIA [None]
  - JOINT STIFFNESS [None]
  - MUSCULAR WEAKNESS [None]
  - FEELING ABNORMAL [None]
  - DYSPHONIA [None]
